FAERS Safety Report 13083248 (Version 3)
Quarter: 2017Q1

REPORT INFORMATION
  Report Type: Spontaneous
  Country: US (occurrence: US)
  Receive Date: 20170104
  Receipt Date: 20170111
  Transmission Date: 20170428
  Serious: Yes (Death, Other)
  Sender: FDA-Public Use
  Company Number: US-PFIZER INC-2016596038

PATIENT
  Sex: Male
  Weight: 91.1 kg

DRUGS (3)
  1. ELIQUIS [Suspect]
     Active Substance: APIXABAN
     Indication: CONGESTIVE CARDIOMYOPATHY
  2. ELIQUIS [Suspect]
     Active Substance: APIXABAN
     Indication: VENTRICULAR TACHYCARDIA
     Dosage: 5 MG, 2X/DAY
     Route: 065
  3. ELIQUIS [Suspect]
     Active Substance: APIXABAN
     Indication: CONGESTIVE CARDIOMYOPATHY

REACTIONS (4)
  - Aortic disorder [Fatal]
  - Product use issue [Unknown]
  - Ventricular tachycardia [Fatal]
  - Chronic obstructive pulmonary disease [Fatal]
